FAERS Safety Report 21494668 (Version 1)
Quarter: 2022Q4

REPORT INFORMATION
  Report Type: Report from Study
  Country: US (occurrence: US)
  Receive Date: 20221021
  Receipt Date: 20221021
  Transmission Date: 20230113
  Serious: Yes (Hospitalization, Other)
  Sender: FDA-Public Use
  Company Number: US-ALLERGAN-2234516US

PATIENT
  Sex: Male
  Weight: 70.3 kg

DRUGS (8)
  1. LINACLOTIDE [Suspect]
     Active Substance: LINACLOTIDE
     Indication: Bowel movement irregularity
     Dosage: UNK
     Route: 048
     Dates: start: 2016
  2. LISINOPRIL [Concomitant]
     Active Substance: LISINOPRIL
     Indication: Hypertension
  3. METOPROLOL [Concomitant]
     Active Substance: METOPROLOL
  4. ARMOUR THYROID [Concomitant]
     Active Substance: THYROID, PORCINE
     Indication: Thyroid disorder
  5. OMEPRAZOLE [Concomitant]
     Active Substance: OMEPRAZOLE
  6. ASPIRIN [Concomitant]
     Active Substance: ASPIRIN
     Indication: Cardiac disorder
  7. LOVASTATIN [Concomitant]
     Active Substance: LOVASTATIN
     Indication: Blood cholesterol increased
  8. PRESERVISION EYE [Concomitant]
     Indication: Macular degeneration

REACTIONS (4)
  - Synovial cyst [Recovering/Resolving]
  - Gastrointestinal disorder [Recovered/Resolved]
  - West Nile viral infection [Recovered/Resolved]
  - Hernia [Recovered/Resolved]

NARRATIVE: CASE EVENT DATE: 20220701
